FAERS Safety Report 22287644 (Version 1)
Quarter: 2023Q2

REPORT INFORMATION
  Report Type: Spontaneous
  Country: US (occurrence: US)
  Receive Date: 20230505
  Receipt Date: 20230505
  Transmission Date: 20230722
  Serious: No
  Sender: FDA-Public Use
  Company Number: US-PADAGIS-2023PAD00645

PATIENT

DRUGS (3)
  1. MOMETASONE FUROATE [Suspect]
     Active Substance: MOMETASONE FUROATE
     Indication: Dermatitis atopic
     Dosage: UNK
     Route: 065
  2. METHOTREXATE [Suspect]
     Active Substance: METHOTREXATE
     Indication: Dermatitis atopic
     Dosage: 10 MG, PER WEEK
     Route: 065
  3. XIPAMIDE [Suspect]
     Active Substance: XIPAMIDE
     Indication: Dermatitis atopic
     Dosage: UNK
     Route: 065

REACTIONS (1)
  - Treatment failure [Unknown]
